FAERS Safety Report 8273504-1 (Version None)
Quarter: 2012Q2

REPORT INFORMATION
  Report Type: 
  Country: None (occurrence: None)
  Receive Date: 20120411
  Receipt Date: 20120402
  Transmission Date: 20120825
  Serious: Yes (Other)
  Sender: FDA-Public Use
  Company Number: US-EISAI INC-E7389-02242-SPO-US

PATIENT
  Age: 72 Year
  Sex: Female
  Weight: 48 kg

DRUGS (9)
  1. GABAPENTIN [Concomitant]
     Dosage: 100 MGS
     Route: 048
     Dates: start: 20120214, end: 20120326
  2. HALAVEN [Suspect]
     Indication: BREAST CANCER METASTATIC
     Route: 041
     Dates: start: 20120307, end: 20120101
  3. TORSEMIDE [Concomitant]
     Dosage: 20 MGS
     Route: 048
     Dates: start: 20110822
  4. FILGRASTIM [Concomitant]
     Indication: PROPHYLAXIS
     Dosage: 300 MCGS
     Route: 058
     Dates: start: 20120308, end: 20120312
  5. DEXAMETHASONE [Concomitant]
     Dosage: 10 MGS
     Route: 042
     Dates: start: 20120307
  6. DEXAMETHASONE [Concomitant]
     Dosage: 10 MGS
     Route: 042
     Dates: start: 20120314
  7. PEGFILGRASTIM [Concomitant]
     Indication: PROPHYLAXIS
     Dosage: 6 MGS
     Route: 058
     Dates: start: 20120315, end: 20120315
  8. HALAVEN [Suspect]
     Route: 041
     Dates: end: 20120327
  9. METOPROLOL TARTRATE [Concomitant]
     Dosage: 100 MGS
     Route: 048
     Dates: start: 20110801

REACTIONS (3)
  - RASH [None]
  - BLISTER [None]
  - RENAL IMPAIRMENT [None]
